FAERS Safety Report 14100845 (Version 2)
Quarter: 2020Q3

REPORT INFORMATION
  Report Type: Report from Study
  Country: KR (occurrence: KR)
  Receive Date: 20171018
  Receipt Date: 20171030
  Transmission Date: 20201104
  Serious: Yes (Death, Hospitalization)
  Sender: FDA-Public Use
  Company Number: KR-ASTRAZENECA-2016SE61547

PATIENT
  Age: 29594 Day
  Sex: Male

DRUGS (29)
  1. MEDI4736 [Suspect]
     Active Substance: DURVALUMAB
     Indication: NON-SMALL CELL LUNG CANCER
     Route: 042
     Dates: start: 20151228, end: 20151228
  2. DENOGAN INJ [Concomitant]
     Indication: ABDOMINAL PAIN
     Dosage: 1000.0MG AS REQUIRED
     Route: 042
     Dates: start: 20160526, end: 20160527
  3. MEDI4736 [Suspect]
     Active Substance: DURVALUMAB
     Indication: NON-SMALL CELL LUNG CANCER
     Route: 042
     Dates: start: 20160125, end: 20160125
  4. MACPERAN [Concomitant]
     Active Substance: METOCLOPRAMIDE HYDROCHLORIDE
     Indication: PROPHYLAXIS OF NAUSEA AND VOMITING
     Route: 048
     Dates: start: 20160517
  5. TREMELIMUMAB. [Suspect]
     Active Substance: TREMELIMUMAB
     Indication: NON-SMALL CELL LUNG CANCER
     Route: 042
     Dates: start: 20151202, end: 20151202
  6. TREMELIMUMAB. [Suspect]
     Active Substance: TREMELIMUMAB
     Indication: NON-SMALL CELL LUNG CANCER
     Route: 042
     Dates: start: 20151228, end: 20151228
  7. TANTUM GARGLE [Concomitant]
     Indication: STOMATITIS
     Route: 002
     Dates: start: 20160517
  8. IRCODON [Concomitant]
     Active Substance: OXYCODONE HYDROCHLORIDE
     Indication: ABDOMINAL PAIN
     Dosage: 5.0MG AS REQUIRED
     Route: 048
     Dates: start: 20160530
  9. BANAN [Concomitant]
     Active Substance: CEFPODOXIME PROXETIL
     Indication: ISCHAEMIC ENTERITIS
     Route: 048
     Dates: start: 20160528, end: 20160607
  10. TREMELIMUMAB. [Suspect]
     Active Substance: TREMELIMUMAB
     Indication: NON-SMALL CELL LUNG CANCER
     Route: 042
     Dates: start: 20160222, end: 20160222
  11. SYLCON [Concomitant]
     Indication: CONSTIPATION PROPHYLAXIS
     Route: 048
     Dates: start: 20160526, end: 20160607
  12. SODIUM BICARBONATE. [Concomitant]
     Active Substance: SODIUM BICARBONATE
     Indication: STOMATITIS
     Route: 002
     Dates: start: 20160517
  13. DUROGESIC D TRANS [Concomitant]
     Active Substance: FENTANYL
     Indication: ABDOMINAL PAIN
     Route: 062
     Dates: start: 20160528, end: 20160529
  14. DUPHALAC EASY [Concomitant]
     Indication: PROPHYLAXIS OF NAUSEA AND VOMITING
     Route: 048
     Dates: start: 20160526, end: 20160530
  15. AMINOACETIC ACID [Concomitant]
     Active Substance: GLYCINE
     Indication: NUTRITIONAL SUPPLEMENTATION
     Dosage: (AMINOACETIC AICD 2.98G, CALCIUM CHLORIDE DIHYDRATE 0.331G)
     Route: 042
     Dates: start: 20160526, end: 20160528
  16. MEDI4736 [Suspect]
     Active Substance: DURVALUMAB
     Indication: NON-SMALL CELL LUNG CANCER
     Route: 042
     Dates: start: 20160222, end: 20160222
  17. MEDI4736 [Suspect]
     Active Substance: DURVALUMAB
     Indication: NON-SMALL CELL LUNG CANCER
     Dosage: 20.0MG/KG ONCE/SINGLE ADMINISTRATION
     Route: 042
     Dates: start: 20160415, end: 20160415
  18. CEFTRIAXONE. [Concomitant]
     Active Substance: CEFTRIAXONE
     Indication: ABDOMINAL PAIN
     Route: 042
     Dates: start: 20160526, end: 20160527
  19. EXFORGE [Concomitant]
     Active Substance: AMLODIPINE BESYLATE\VALSARTAN
     Indication: HYPERTENSION
     Dosage: 5/160 MG 1 TABLET DAILY
     Route: 048
     Dates: start: 20160528, end: 20160607
  20. TREMELIMUMAB. [Suspect]
     Active Substance: TREMELIMUMAB
     Indication: NON-SMALL CELL LUNG CANCER
     Route: 042
     Dates: start: 20160125, end: 20160125
  21. FOLIC ACID. [Concomitant]
     Active Substance: FOLIC ACID
     Indication: PREMEDICATION
     Route: 048
     Dates: start: 20160517
  22. MORPHINE SULFATE. [Concomitant]
     Active Substance: MORPHINE SULFATE
     Indication: ABDOMINAL PAIN
     Dosage: 3.0MG AS REQUIRED
     Route: 042
     Dates: start: 20160526, end: 20160526
  23. MORPHINE SULFATE. [Concomitant]
     Active Substance: MORPHINE SULFATE
     Indication: ABDOMINAL PAIN
     Dosage: 9.6MG AS REQUIRED
     Route: 042
     Dates: start: 20160527, end: 20160528
  24. SEROQUEL [Concomitant]
     Active Substance: QUETIAPINE FUMARATE
     Indication: DELIRIUM
     Route: 048
     Dates: start: 20160530, end: 20160607
  25. MEDI4736 [Suspect]
     Active Substance: DURVALUMAB
     Indication: NON-SMALL CELL LUNG CANCER
     Route: 042
     Dates: start: 20151202, end: 20151202
  26. MEDI4736 [Suspect]
     Active Substance: DURVALUMAB
     Indication: NON-SMALL CELL LUNG CANCER
     Dosage: 20.0MG/KG ONCE/SINGLE ADMINISTRATION
     Route: 042
     Dates: start: 20160321, end: 20160321
  27. MEDI4736 [Suspect]
     Active Substance: DURVALUMAB
     Indication: NON-SMALL CELL LUNG CANCER
     Dosage: 20.0MG/KG ONCE/SINGLE ADMINISTRATION
     Route: 042
     Dates: start: 20160517, end: 20160517
  28. TYLENOL ER [Concomitant]
     Active Substance: ACETAMINOPHEN
     Indication: ABDOMINAL PAIN
     Route: 048
     Dates: start: 20160528, end: 20160529
  29. TAMIPOOL [Concomitant]
     Active Substance: VITAMINS
     Indication: NUTRITIONAL SUPPLEMENTATION
     Route: 042
     Dates: start: 20160526, end: 20160528

REACTIONS (1)
  - Ischaemic enteritis [Recovering/Resolving]

NARRATIVE: CASE EVENT DATE: 20160605
